FAERS Safety Report 8156107-9 (Version None)
Quarter: 2012Q1

REPORT INFORMATION
  Report Type: 
  Country: None (occurrence: None)
  Receive Date: 20120222
  Receipt Date: 20120220
  Transmission Date: 20120608
  Serious: Yes (Other)
  Sender: FDA-Public Use
  Company Number: US-PFIZER INC-2012045265

PATIENT
  Sex: Female
  Weight: 115.65 kg

DRUGS (2)
  1. CHANTIX [Suspect]
     Indication: SMOKING CESSATION THERAPY
     Dosage: 0.5 MG, DAILY
     Dates: start: 20120220
  2. INSULIN [Concomitant]
     Indication: DIABETES MELLITUS
     Dosage: 35 UNITS, DAILY

REACTIONS (2)
  - FEELING ABNORMAL [None]
  - FEELING DRUNK [None]
